FAERS Safety Report 18618067 (Version 1)
Quarter: 2020Q4

REPORT INFORMATION
  Report Type: Spontaneous
  Country: GB (occurrence: GB)
  Receive Date: 20201215
  Receipt Date: 20201215
  Transmission Date: 20210114
  Serious: Yes (Other)
  Sender: FDA-Public Use
  Company Number: GB-MYLANLABS-2020M1103700

PATIENT
  Age: 59 Year
  Sex: Male
  Weight: 64 kg

DRUGS (3)
  1. ROZEX (METRONIDAZOLE) [Concomitant]
     Active Substance: METRONIDAZOLE
     Indication: ROSACEA
     Dosage: UNK
     Route: 061
  2. EMTRICITABINE [Suspect]
     Active Substance: EMTRICITABINE
     Indication: PRODUCT USED FOR UNKNOWN INDICATION
     Dosage: 200 MILLIGRAM
     Route: 048
  3. TENOFOVIR [Suspect]
     Active Substance: TENOFOVIR
     Indication: PRODUCT USED FOR UNKNOWN INDICATION
     Dosage: 300 MILLIGRAM
     Route: 048
     Dates: start: 20200312, end: 202008

REACTIONS (1)
  - Erectile dysfunction [Recovered/Resolved]

NARRATIVE: CASE EVENT DATE: 202008
